FAERS Safety Report 9427292 (Version 1)
Quarter: 2013Q3

REPORT INFORMATION
  Report Type: Spontaneous
  Country: US (occurrence: US)
  Receive Date: 20130730
  Receipt Date: 20130730
  Transmission Date: 20140515
  Serious: No
  Sender: FDA-Public Use
  Company Number: US-ABBOTT-12P-163-0980685-00

PATIENT
  Age: 66 Year
  Sex: Male
  Weight: 79.45 kg

DRUGS (8)
  1. NIASPAN (COATED) [Suspect]
     Indication: BLOOD CHOLESTEROL
     Route: 048
     Dates: start: 20120916
  2. LISINOPRIL [Concomitant]
     Indication: BLOOD PRESSURE
  3. AVAPRO [Concomitant]
     Indication: BLOOD PRESSURE
  4. LIPOFEN [Concomitant]
     Indication: BLOOD CHOLESTEROL
  5. FISH OIL [Concomitant]
     Indication: BLOOD CHOLESTEROL
  6. MULTIVITAMIN [Concomitant]
     Indication: SUPPLEMENTATION THERAPY
  7. VITAMIN D [Concomitant]
     Indication: SUPPLEMENTATION THERAPY
  8. ASPIRIN [Concomitant]
     Indication: PRODUCT USED FOR UNKNOWN INDICATION

REACTIONS (2)
  - Vomiting [Recovered/Resolved]
  - Diarrhoea [Recovered/Resolved]
